FAERS Safety Report 8857099 (Version 1)
Quarter: 2012Q4

REPORT INFORMATION
  Report Type: 
  Country: US (occurrence: US)
  Receive Date: 20121023
  Receipt Date: 20121023
  Transmission Date: 20130627
  Serious: No
  Sender: FDA-Public Use
  Company Number: US-AMGEN-USASP2012055138

PATIENT
  Sex: Female
  Weight: 99.77 kg

DRUGS (9)
  1. ENBREL [Suspect]
     Indication: PRODUCT USED FOR UNKNOWN INDICATION
     Dosage: 50 mg/ml, qwk
     Route: 058
  2. METHOTREXATE [Concomitant]
     Dosage: UNK
  3. COZAAR [Concomitant]
     Dosage: 25 mg, UNK
  4. PREDNISONE [Concomitant]
     Dosage: 1 mg, UNK
  5. ADVAIR [Concomitant]
     Dosage: 100 UNK, UNK
  6. LEXAPRO [Concomitant]
     Dosage: 10 mg, UNK
  7. MULTIVITAMIN                       /00097801/ [Concomitant]
     Dosage: UNK
  8. FOLIC ACID [Concomitant]
     Dosage: 200 mug, UNK
  9. HUMIRA [Concomitant]

REACTIONS (1)
  - Therapeutic response decreased [Unknown]
